FAERS Safety Report 13972396 (Version 1)
Quarter: 2017Q3

REPORT INFORMATION
  Report Type: Spontaneous
  Country: US (occurrence: US)
  Receive Date: 20170915
  Receipt Date: 20170915
  Transmission Date: 20171128
  Serious: No
  Sender: FDA-Public Use
  Company Number: US-BAYER-2017-177151

PATIENT
  Sex: Female

DRUGS (2)
  1. MIDOL EXTENDED RELIEF [Suspect]
     Active Substance: NAPROXEN SODIUM
     Dosage: UNK
  2. MIDOL COMPLETE [Suspect]
     Active Substance: ACETAMINOPHEN\CAFFEINE\PYRILAMINE MALEATE
     Dosage: UNK

REACTIONS (4)
  - Feeling abnormal [Unknown]
  - Incorrect dose administered [None]
  - Drug ineffective [Unknown]
  - Anxiety [Unknown]
